FAERS Safety Report 7549482-7 (Version None)
Quarter: 2011Q2

REPORT INFORMATION
  Report Type: 
  Country: None (occurrence: None)
  Receive Date: 20110615
  Receipt Date: 20050201
  Transmission Date: 20111010
  Serious: Yes (Death, Other)
  Sender: FDA-Public Use
  Company Number: PHFR2004GB01955

PATIENT

DRUGS (1)
  1. CLOZAPINE [Suspect]
     Indication: PSYCHOTIC DISORDER
     Dosage: UNKNOWN

REACTIONS (5)
  - PNEUMONIA [None]
  - COLON NEOPLASM [None]
  - ANAEMIA [None]
  - MYOCARDIAL INFARCTION [None]
  - HAEMOGLOBIN DECREASED [None]
